FAERS Safety Report 9833189 (Version 3)
Quarter: 2014Q1

REPORT INFORMATION
  Report Type: Spontaneous
  Country: AU (occurrence: AU)
  Receive Date: 20140121
  Receipt Date: 20140221
  Transmission Date: 20141002
  Serious: Yes (Life-Threatening, Hospitalization)
  Sender: FDA-Public Use
  Company Number: AU-CELGENEUS-008-20785-13123913

PATIENT
  Age: 79 Year
  Sex: Male

DRUGS (5)
  1. THALOMID [Suspect]
     Indication: PLASMA CELL MYELOMA
     Dosage: 100 MILLIGRAM
     Route: 048
     Dates: start: 20130718
  2. PANTOPRAZOLE [Concomitant]
     Indication: PRODUCT USED FOR UNKNOWN INDICATION
     Route: 065
  3. ESOMEPRAZOLE [Concomitant]
     Indication: GASTROOESOPHAGEAL REFLUX DISEASE
     Route: 065
  4. ASPIRINE [Concomitant]
     Indication: ATRIAL FIBRILLATION
     Route: 048
  5. METOCLOPRAMIDE [Concomitant]
     Indication: HYPERTENSION
     Route: 065

REACTIONS (4)
  - Gastric cancer [Not Recovered/Not Resolved]
  - Gastric perforation [Not Recovered/Not Resolved]
  - Peritonitis [Recovered/Resolved]
  - Pneumonia [Recovered/Resolved]
